FAERS Safety Report 4306751-1 (Version None)
Quarter: 2004Q1

REPORT INFORMATION
  Report Type: 
  Country: None (occurrence: None)
  Receive Date: 20040227
  Receipt Date: 20040122
  Transmission Date: 20041129
  Serious: Yes (Other)
  Sender: FDA-Public Use
  Company Number: BW-BRISTOL-MYERS SQUIBB COMPANY-12486304

PATIENT
  Age: 37 Year
  Sex: Male

DRUGS (3)
  1. EFAVIRENZ [Suspect]
     Indication: HIV INFECTION
     Dosage: ON HOLD SINCE 14-JAN-2004
  2. DIDANOSINE [Suspect]
     Indication: HIV INFECTION
     Dosage: ON HOLD SINCE 14-JAN-2004
  3. ZIDOVUDINE [Suspect]
     Indication: HIV INFECTION
     Dosage: ON HOLD SINCE 14-JAN-2004

REACTIONS (7)
  - ANAEMIA [None]
  - FAILURE TO THRIVE [None]
  - PNEUMOCYSTIS CARINII PNEUMONIA [None]
  - PNEUMONIA [None]
  - PULMONARY TUBERCULOSIS [None]
  - RENAL FAILURE [None]
  - WEIGHT DECREASED [None]
